FAERS Safety Report 5310283-1 (Version None)
Quarter: 2007Q2

REPORT INFORMATION
  Report Type: 
  Country: None (occurrence: None)
  Receive Date: 20070423
  Receipt Date: 20070405
  Transmission Date: 20071010
  Serious: Yes (Other)
  Sender: FDA-Public Use
  Company Number: 2007RR-06817

PATIENT
  Age: 85 Year

DRUGS (1)
  1. CIPROFLOXACIN [Suspect]
     Dosage: 250 MG, BID, ORAL
     Route: 048

REACTIONS (6)
  - ACTIVATED PARTIAL THROMBOPLASTIN TIME PROLONGED [None]
  - ANTI FACTOR V ANTIBODY POSITIVE [None]
  - ANTIPHOSPHOLIPID ANTIBODIES POSITIVE [None]
  - COAGULOPATHY [None]
  - HAEMORRHAGE [None]
  - PROTHROMBIN TIME SHORTENED [None]
